FAERS Safety Report 5987721-4 (Version None)
Quarter: 2008Q4

REPORT INFORMATION
  Report Type: 
  Country: None (occurrence: None)
  Receive Date: 20081209
  Receipt Date: 20081117
  Transmission Date: 20090506
  Serious: No
  Sender: FDA-Public Use
  Company Number: US-B.I. PHARMACEUTICALS,INC./RIDGEFIELD-2008-BP-17413BP

PATIENT
  Sex: Male

DRUGS (7)
  1. MIRAPEX [Suspect]
     Indication: RESTLESS LEGS SYNDROME
     Dosage: 1MG
     Route: 048
     Dates: start: 20081105, end: 20081115
  2. ASCORBIC ACID [Concomitant]
  3. VITAMIN B6 [Concomitant]
  4. VITAMIN B-12 [Concomitant]
  5. FISH OIL [Concomitant]
  6. KNOX GELATIN POWDER [Concomitant]
     Indication: JOINT DEPOSIT
  7. ZYRTEC [Concomitant]

REACTIONS (7)
  - COLD SWEAT [None]
  - DIZZINESS [None]
  - HEADACHE [None]
  - MOTION SICKNESS [None]
  - OVERDOSE [None]
  - PHOTOPSIA [None]
  - VOMITING [None]
